FAERS Safety Report 6175128-9 (Version None)
Quarter: 2009Q2

REPORT INFORMATION
  Report Type: 
  Country: None (occurrence: None)
  Receive Date: 20090430
  Receipt Date: 20081230
  Transmission Date: 20091009
  Serious: No
  Sender: FDA-Public Use
  Company Number: US-ASTRAZENECA-2008UW28894

PATIENT
  Sex: Male

DRUGS (2)
  1. NEXIUM [Suspect]
     Dosage: ONE TABLET, AS NEEDED
     Route: 048
     Dates: start: 20040101
  2. NEXIUM [Suspect]
     Dosage: ONE TABLET, AS NEEDED
     Route: 048
     Dates: start: 20081229

REACTIONS (1)
  - ILL-DEFINED DISORDER [None]
